FAERS Safety Report 8072013-2 (Version None)
Quarter: 2011Q4

REPORT INFORMATION
  Report Type: 
  Country: None (occurrence: None)
  Receive Date: 20111221
  Receipt Date: 20110804
  Transmission Date: 20120403
  Serious: Yes (Other)
  Sender: FDA-Public Use
  Company Number: PHHY2011US65261

PATIENT
  Age: 65 Year
  Sex: Male
  Weight: 144.2 kg

DRUGS (8)
  1. TOPROL-XL [Concomitant]
  2. COUMADIN [Concomitant]
  3. LASIX [Concomitant]
  4. SYNTHROID [Concomitant]
  5. ASPIRIN [Concomitant]
  6. EXJADE [Suspect]
     Indication: CHELATION THERAPY
     Dosage: 2875 MG, QD, ORAL ; 2875 MG, QD, ORAL
     Route: 048
     Dates: start: 20110713, end: 20110722
  7. EXJADE [Suspect]
     Indication: CHELATION THERAPY
     Dosage: 2875 MG, QD, ORAL ; 2875 MG, QD, ORAL
     Route: 048
     Dates: start: 20110801, end: 20110802
  8. PRILOSEC [Concomitant]

REACTIONS (5)
  - HYPERSENSITIVITY [None]
  - PRURITUS [None]
  - DIARRHOEA [None]
  - ABDOMINAL DISCOMFORT [None]
  - RASH [None]
